FAERS Safety Report 21573382 (Version 1)
Quarter: 2022Q4

REPORT INFORMATION
  Report Type: Report from Study
  Country: US (occurrence: None)
  Receive Date: 20221109
  Receipt Date: 20221109
  Transmission Date: 20230113
  Serious: Yes (Hospitalization)
  Sender: FDA-Public Use
  Company Number: US-Eisai Medical Research-EC-2022-125486

PATIENT
  Age: 61 Year
  Sex: Male
  Weight: 112 kg

DRUGS (4)
  1. LENVIMA [Suspect]
     Active Substance: LENVATINIB
     Indication: Renal cell carcinoma
     Route: 048
     Dates: start: 202209, end: 20221004
  2. LENVIMA [Suspect]
     Active Substance: LENVATINIB
     Route: 048
     Dates: start: 202210, end: 202210
  3. KEYTRUDA [Concomitant]
     Active Substance: PEMBROLIZUMAB
     Dosage: 100MG/4ML VIAL
  4. ASPIRIN [Concomitant]
     Active Substance: ASPIRIN
     Dosage: LOW DOSE - 81MG

REACTIONS (3)
  - Rash [Recovering/Resolving]
  - Blood urine present [Unknown]
  - Pruritus [Unknown]

NARRATIVE: CASE EVENT DATE: 20221004
